FAERS Safety Report 7374909-3 (Version None)
Quarter: 2011Q1

REPORT INFORMATION
  Report Type: 
  Country: None (occurrence: None)
  Receive Date: 20110325
  Receipt Date: 20110317
  Transmission Date: 20110831
  Serious: Yes (Hospitalization)
  Sender: FDA-Public Use
  Company Number: US-NOVOPROD-325305

PATIENT
  Age: 14 Year
  Sex: Male
  Weight: 59.4 kg

DRUGS (1)
  1. NORDITROPIN [Suspect]
     Indication: GROWTH HORMONE DEFICIENCY
     Dosage: 2.625 MG, QD
     Dates: start: 20090601, end: 20110301

REACTIONS (1)
  - RHABDOMYOLYSIS [None]
